FAERS Safety Report 19691370 (Version 1)
Quarter: 2021Q3

REPORT INFORMATION
  Report Type: Spontaneous
  Country: US (occurrence: US)
  Receive Date: 20210812
  Receipt Date: 20210812
  Transmission Date: 20211014
  Serious: No
  Sender: FDA-Public Use
  Company Number: US-PFIZER INC-2021548230

PATIENT
  Age: 73 Year
  Sex: Female
  Weight: 47.63 kg

DRUGS (2)
  1. PREMARIN [Suspect]
     Active Substance: ESTROGENS, CONJUGATED
     Indication: HORMONE REPLACEMENT THERAPY
     Dosage: 0.625 MG, 1X/DAY
  2. PREMARIN [Suspect]
     Active Substance: ESTROGENS, CONJUGATED
     Indication: NEOPLASM MALIGNANT
     Dosage: UNK (TAKING IT EVERY 2?3 DAYS)

REACTIONS (2)
  - Intentional product misuse [Unknown]
  - Hot flush [Unknown]
